FAERS Safety Report 6673831-5 (Version None)
Quarter: 2010Q2

REPORT INFORMATION
  Report Type: 
  Country: None (occurrence: None)
  Receive Date: 20100407
  Receipt Date: 20100324
  Transmission Date: 20101027
  Serious: Yes (Death, Other)
  Sender: FDA-Public Use
  Company Number: AXC-2010-000076

PATIENT
  Sex: Male

DRUGS (1)
  1. PHOTOFRIN (PORFIMER SODIUM) POWDER FOR SOLUTION FOR INJECTION, 75MG [Suspect]
     Indication: NON-SMALL CELL LUNG CANCER STAGE IIIB
     Dosage: 2 MG/KG BODY WEIGHT, SINGLE, INTRAVENOUS
     Route: 042
     Dates: start: 20030107, end: 20030107

REACTIONS (9)
  - BRONCHIAL OBSTRUCTION [None]
  - COLLAPSE OF LUNG [None]
  - DYSPNOEA [None]
  - EXCESSIVE GRANULATION TISSUE [None]
  - ODYNOPHAGIA [None]
  - PHOTOSENSITIVITY REACTION [None]
  - PNEUMONIA [None]
  - TRACHEAL DEVIATION [None]
  - TRACHEAL STENOSIS [None]
